FAERS Safety Report 7583135-4 (Version None)
Quarter: 2011Q2

REPORT INFORMATION
  Report Type: 
  Country: None (occurrence: None)
  Receive Date: 20110630
  Receipt Date: 20101025
  Transmission Date: 20111010
  Serious: Yes (Other)
  Sender: FDA-Public Use
  Company Number: US-ASTRAZENECA-2010SE50562

PATIENT
  Age: 981 Month
  Sex: Male
  Weight: 70.3 kg

DRUGS (1)
  1. ZOLADEX [Suspect]
     Indication: PROSTATE CANCER
     Route: 058
     Dates: start: 20061101

REACTIONS (4)
  - ASTHENIA [None]
  - PULMONARY EMBOLISM [None]
  - BODY HEIGHT DECREASED [None]
  - DRUG DOSE OMISSION [None]
